FAERS Safety Report 9043989 (Version 1)
Quarter: 2013Q1

REPORT INFORMATION
  Report Type: Report from Study
  Country: US (occurrence: US)
  Receive Date: 20130130
  Receipt Date: 20130130
  Transmission Date: 20140127
  Serious: No
  Sender: FDA-Public Use
  Company Number: US-ABBOTT-12P-163-0948856-00

PATIENT
  Age: 71 Year
  Sex: Male

DRUGS (13)
  1. HUMIRA 40 MG/0.8 ML PEN [Suspect]
     Indication: PSORIATIC ARTHROPATHY
     Dosage: LOADING DOSE
     Dates: start: 20120612
  2. AMLODIPINE [Concomitant]
     Indication: BLOOD PRESSURE
  3. ACIPHEX EC [Concomitant]
     Indication: PRODUCT USED FOR UNKNOWN INDICATION
     Dosage: DAILY
  4. DEXILANT DR [Concomitant]
     Indication: GASTROOESOPHAGEAL REFLUX DISEASE
  5. GAVISCON EXTRA STRENGTH [Concomitant]
     Indication: PRODUCT USED FOR UNKNOWN INDICATION
  6. PRISTIQ ER [Concomitant]
     Indication: DEPRESSION
     Dosage: 2 EVERY MORNING
  7. PRISTIQ ER [Concomitant]
     Indication: ANXIETY
  8. OXYCONTIN [Concomitant]
     Indication: PAIN
     Route: 048
  9. NASONEX [Concomitant]
     Indication: GASTROOESOPHAGEAL REFLUX DISEASE
     Dosage: DAILY
     Route: 045
  10. FLOMAX HCL [Concomitant]
     Indication: PROSTATOMEGALY
     Dosage: DAILY
  11. ALPRAZOLAM ER [Concomitant]
     Indication: ANXIETY
  12. SEROQUEL [Concomitant]
     Indication: DEPRESSION
  13. SEROQUEL [Concomitant]
     Indication: ANXIETY

REACTIONS (1)
  - Injection site pain [Recovering/Resolving]
